FAERS Safety Report 19832489 (Version 1)
Quarter: 2021Q3

REPORT INFORMATION
  Report Type: Report from Study
  Country: FR (occurrence: FR)
  Receive Date: 20210914
  Receipt Date: 20210914
  Transmission Date: 20211014
  Serious: Yes (Hospitalization)
  Sender: FDA-Public Use
  Company Number: FR-TAKEDA-FR201945892

PATIENT
  Age: 69 Year
  Sex: Female

DRUGS (8)
  1. TEDUGLUTIDE [Suspect]
     Active Substance: TEDUGLUTIDE
     Indication: SHORT-BOWEL SYNDROME
     Dosage: 2.4 MILLIGRAM, QD
     Route: 065
     Dates: start: 20190129, end: 20201103
  2. TEDUGLUTIDE [Suspect]
     Active Substance: TEDUGLUTIDE
     Indication: SHORT-BOWEL SYNDROME
     Dosage: 2.4 MILLIGRAM, QD
     Route: 065
     Dates: start: 20190129, end: 20201103
  3. CERNEVIT [Concomitant]
     Active Substance: VITAMINS
     Indication: PROPHYLAXIS
     Dosage: 1 INTERNATIONAL UNIT, 2/WEEK
     Route: 042
  4. TEDUGLUTIDE [Suspect]
     Active Substance: TEDUGLUTIDE
     Indication: SHORT-BOWEL SYNDROME
     Dosage: 2.4 MILLIGRAM, QD
     Route: 065
     Dates: start: 20190129, end: 20201103
  5. MAGNESIUM ARROW [Concomitant]
     Indication: PROPHYLAXIS
     Dosage: 2 DOSAGE FORM, 2/WEEK
     Route: 042
  6. PARACETAMOL [Concomitant]
     Active Substance: ACETAMINOPHEN
     Indication: PROPHYLAXIS
     Dosage: 1 INTERNATIONAL UNIT
     Route: 048
  7. GLUCONATE DE CALCIUM AGUETTANT [Concomitant]
     Indication: PROPHYLAXIS
     Dosage: 2 DOSAGE FORM, 2/WEEK
     Route: 042
  8. TEDUGLUTIDE [Suspect]
     Active Substance: TEDUGLUTIDE
     Indication: SHORT-BOWEL SYNDROME
     Dosage: 2.4 MILLIGRAM, QD
     Route: 065
     Dates: start: 20190129, end: 20201103

REACTIONS (2)
  - Dehydration [Recovered/Resolved]
  - Viral infection [Recovered/Resolved]

NARRATIVE: CASE EVENT DATE: 20190705
